FAERS Safety Report 5895280-X (Version None)
Quarter: 2008Q3

REPORT INFORMATION
  Report Type: 
  Country: None (occurrence: None)
  Receive Date: 20080923
  Receipt Date: 20080923
  Transmission Date: 20090109
  Serious: Yes (Other)
  Sender: FDA-Public Use
  Company Number: None

PATIENT
  Age: 28 Year
  Sex: Female
  Weight: 58.9676 kg

DRUGS (1)
  1. FLUOXETINE [Suspect]
     Indication: DEPRESSION
     Dosage: 20 MG ONCE A DAY PO
     Route: 048
     Dates: start: 20070825

REACTIONS (3)
  - HAEMATOCHEZIA [None]
  - MOOD SWINGS [None]
  - NO THERAPEUTIC RESPONSE [None]
